FAERS Safety Report 7693375-1 (Version None)
Quarter: 2011Q3

REPORT INFORMATION
  Report Type: 
  Country: None (occurrence: None)
  Receive Date: 20110819
  Receipt Date: 20110811
  Transmission Date: 20111222
  Serious: Yes (Death)
  Sender: FDA-Public Use
  Company Number: GW-ABBOTT-11P-071-0843253-00

PATIENT
  Sex: Male
  Weight: 69 kg

DRUGS (5)
  1. ZIDOVUDINE [Concomitant]
     Indication: HIV INFECTION
     Route: 048
     Dates: start: 20110518
  2. LAMIVUDINE [Concomitant]
     Indication: HIV INFECTION
     Route: 048
     Dates: start: 20110518
  3. KALETRA [Suspect]
     Indication: HIV INFECTION
     Dosage: 200/50MG-2 TABLETS TWICE A DAY
     Route: 048
     Dates: start: 20110518
  4. COTRIMAXAZOLE [Concomitant]
     Indication: PROPHYLAXIS
     Route: 048
     Dates: start: 20110328
  5. UNKNOWN TRADITIONAL MEDICINE [Concomitant]
     Indication: PRODUCT USED FOR UNKNOWN INDICATION

REACTIONS (1)
  - DEATH [None]
